FAERS Safety Report 25501547 (Version 2)
Quarter: 2025Q3

REPORT INFORMATION
  Report Type: Spontaneous
  Country: JP (occurrence: JP)
  Receive Date: 20250701
  Receipt Date: 20250720
  Transmission Date: 20251020
  Serious: Yes (Hospitalization)
  Sender: JOHNSON AND JOHNSON
  Company Number: JP-JNJFOC-20250700288

PATIENT
  Age: 55 Year
  Sex: Male

DRUGS (3)
  1. RYBREVANT [Suspect]
     Active Substance: AMIVANTAMAB-VMJW
     Indication: EGFR gene mutation
     Route: 041
     Dates: start: 20250625, end: 20250625
  2. CARBOPLATIN [Concomitant]
     Active Substance: CARBOPLATIN
     Indication: EGFR gene mutation
     Route: 041
     Dates: start: 20250625, end: 20250625
  3. PEMETREXED [Concomitant]
     Active Substance: PEMETREXED
     Indication: EGFR gene mutation
     Route: 041
     Dates: start: 20250625, end: 20250625

REACTIONS (3)
  - Infusion related reaction [Recovering/Resolving]
  - Heart rate decreased [Recovering/Resolving]
  - Electrocardiogram P wave abnormal [Recovering/Resolving]

NARRATIVE: CASE EVENT DATE: 20250625
